FAERS Safety Report 4920242-6 (Version None)
Quarter: 2006Q1

REPORT INFORMATION
  Report Type: 
  Country: None (occurrence: None)
  Receive Date: 20060113
  Receipt Date: 20050929
  Transmission Date: 20060701
  Serious: No
  Sender: FDA-Public Use
  Company Number: 2005SP003291

PATIENT
  Age: 23 Year
  Sex: Female
  Weight: 72.5755 kg

DRUGS (3)
  1. LUNESTA [Suspect]
     Dosage: 1 MG; HS; ORAL; 2 MG; HS; ORAL; 3 MG;  HS; ORAL
     Route: 048
     Dates: start: 20050824, end: 20050824
  2. LUNESTA [Suspect]
     Dosage: 1 MG; HS; ORAL; 2 MG; HS; ORAL; 3 MG;  HS; ORAL
     Route: 048
     Dates: start: 20050825, end: 20050825
  3. LUNESTA [Suspect]
     Dosage: 1 MG; HS; ORAL; 2 MG; HS; ORAL; 3 MG;  HS; ORAL
     Route: 048
     Dates: start: 20050826, end: 20050826

REACTIONS (2)
  - DRUG INEFFECTIVE [None]
  - INSOMNIA [None]
